FAERS Safety Report 19034194 (Version 1)
Quarter: 2021Q1

REPORT INFORMATION
  Report Type: Report from Study
  Country: GB (occurrence: GB)
  Receive Date: 20210319
  Receipt Date: 20210319
  Transmission Date: 20210420
  Serious: Yes (Other)
  Sender: FDA-Public Use
  Company Number: NVSC2021GB059242

PATIENT
  Sex: Female

DRUGS (1)
  1. HYRIMOZ [Suspect]
     Active Substance: ADALIMUMAB-ADAZ
     Indication: RHEUMATOID ARTHRITIS
     Dosage: 40 MG, Q2W (EOW)
     Route: 058
     Dates: start: 20190723

REACTIONS (11)
  - Back pain [Unknown]
  - Overweight [Unknown]
  - Epilepsy [Unknown]
  - Arthralgia [Unknown]
  - Poor quality sleep [Unknown]
  - Pain in extremity [Unknown]
  - Mobility decreased [Unknown]
  - Therapeutic product effect decreased [Unknown]
  - Fibromyalgia [Unknown]
  - COVID-19 [Unknown]
  - Fatigue [Unknown]
